FAERS Safety Report 24399661 (Version 1)
Quarter: 2024Q4

REPORT INFORMATION
  Report Type: Report from Study
  Country: ZA (occurrence: ZA)
  Receive Date: 20241005
  Receipt Date: 20241005
  Transmission Date: 20250114
  Serious: Yes (Hospitalization)
  Sender: ABBVIE
  Company Number: ZA-ABBVIE-5946776

PATIENT
  Age: 52 Year
  Sex: Female

DRUGS (1)
  1. RINVOQ [Suspect]
     Active Substance: UPADACITINIB
     Indication: Rheumatoid arthritis
     Dosage: 15 MILLIGRAM
     Route: 048
     Dates: start: 20221011

REACTIONS (3)
  - Myasthenia gravis crisis [Recovering/Resolving]
  - Dyspnoea [Unknown]
  - Aphasia [Recovering/Resolving]

NARRATIVE: CASE EVENT DATE: 20240925
